FAERS Safety Report 5572673-1 (Version None)
Quarter: 2007Q4

REPORT INFORMATION
  Report Type: 
  Country: None (occurrence: None)
  Receive Date: 20071222
  Receipt Date: 20071212
  Transmission Date: 20080405
  Serious: Yes (Other)
  Sender: FDA-Public Use
  Company Number: GB-PFIZER INC-2007105485

PATIENT
  Age: 52 Year
  Sex: Male

DRUGS (5)
  1. LIPITOR [Suspect]
     Route: 048
  2. METOPROLOL [Suspect]
  3. ISOSORBIDE MONONITRATE [Suspect]
  4. APROVEL [Suspect]
  5. ACETYLSALICYLIC ACID SRT [Suspect]

REACTIONS (7)
  - ANGINA PECTORIS [None]
  - COUGH [None]
  - DIZZINESS [None]
  - DYSPHAGIA [None]
  - HYPOAESTHESIA [None]
  - PHARYNGEAL DISORDER [None]
  - PRURITUS [None]
